FAERS Safety Report 11380984 (Version 1)
Quarter: 2015Q3

REPORT INFORMATION
  Report Type: Spontaneous
  Country: US (occurrence: US)
  Receive Date: 20150814
  Receipt Date: 20150814
  Transmission Date: 20151125
  Serious: No
  Sender: FDA-Public Use
  Company Number: US-ASTRAZENECA-2015SE76139

PATIENT
  Age: 23598 Day
  Sex: Female
  Weight: 108 kg

DRUGS (2)
  1. BYDUREON [Suspect]
     Active Substance: EXENATIDE
     Indication: GLUCOSE TOLERANCE IMPAIRED
     Route: 058
  2. STEROIDS [Concomitant]
     Active Substance: UNSPECIFIED INGREDIENT

REACTIONS (4)
  - Injection site haemorrhage [Unknown]
  - Injection site rash [Unknown]
  - Pruritus generalised [Unknown]
  - Weight increased [Unknown]

NARRATIVE: CASE EVENT DATE: 20150728
